FAERS Safety Report 8244667-9 (Version None)
Quarter: 2012Q1

REPORT INFORMATION
  Report Type: 
  Country: None (occurrence: None)
  Receive Date: 20120329
  Receipt Date: 20120104
  Transmission Date: 20120608
  Serious: No
  Sender: FDA-Public Use
  Company Number: US-MYLANLABS-2012S1000336

PATIENT
  Sex: Male

DRUGS (5)
  1. FENTANYL-100 [Suspect]
     Indication: ARTHRALGIA
     Dosage: CHANGED Q48HRS
     Route: 062
     Dates: start: 20100101
  2. LORAZEPAM [Concomitant]
     Indication: ANXIETY
     Dosage: 1 TABLET EVERY 2-3 DAYS
     Route: 048
  3. AMBIEN [Concomitant]
     Indication: INSOMNIA
  4. FENTANYL-100 [Suspect]
     Indication: BACK PAIN
     Dosage: CHANGED Q48HRS
     Route: 062
     Dates: start: 20100101
  5. OXYCODONE HCL [Concomitant]
     Indication: BREAKTHROUGH PAIN

REACTIONS (4)
  - BACK PAIN [None]
  - ARTHRALGIA [None]
  - DRUG EFFECT DECREASED [None]
  - FALSE NEGATIVE INVESTIGATION RESULT [None]
